FAERS Safety Report 5273130-2 (Version None)
Quarter: 2007Q1

REPORT INFORMATION
  Report Type: 
  Country: None (occurrence: None)
  Receive Date: 20070322
  Receipt Date: 20070312
  Transmission Date: 20070707
  Serious: Yes (Death, Hospitalization)
  Sender: FDA-Public Use
  Company Number: US-SANOFI-SYNTHELABO-A03200702005

PATIENT
  Sex: Male

DRUGS (4)
  1. DESIPRAMINE HCL [Concomitant]
     Indication: DRUG USE FOR UNKNOWN INDICATION
     Dosage: UNK
     Route: 065
  2. LAMICTAL [Concomitant]
     Indication: DRUG USE FOR UNKNOWN INDICATION
     Dosage: UNK
     Route: 065
  3. VERAPAMIL [Concomitant]
     Indication: DRUG USE FOR UNKNOWN INDICATION
     Dosage: UNK
     Route: 065
  4. AMBIEN [Suspect]
     Indication: INSOMNIA
     Dosage: 10 TO 20 MG AS NEEDED
     Route: 048
     Dates: start: 20000301

REACTIONS (12)
  - AMNESIA [None]
  - ANGER [None]
  - BRAIN DEATH [None]
  - COMPLETED SUICIDE [None]
  - DRUG INEFFECTIVE [None]
  - FALL [None]
  - FATIGUE [None]
  - FEELING ABNORMAL [None]
  - HEAD INJURY [None]
  - OVERDOSE [None]
  - SLUGGISHNESS [None]
  - SOMNOLENCE [None]
